FAERS Safety Report 4286659-0 (Version None)
Quarter: 2004Q1

REPORT INFORMATION
  Report Type: 
  Country: None (occurrence: None)
  Receive Date: 20040204
  Receipt Date: 20040123
  Transmission Date: 20041129
  Serious: Yes (Other)
  Sender: FDA-Public Use
  Company Number: 028-20785-04010668

PATIENT
  Age: 75 Year
  Sex: Female

DRUGS (16)
  1. THALOMID [Suspect]
     Indication: MULTIPLE MYELOMA
     Dosage: 200-300 MG, DAILY, ORAL
     Route: 048
     Dates: start: 20020920, end: 20021107
  2. THALOMID [Suspect]
     Indication: MULTIPLE MYELOMA
     Dosage: 200-300 MG, DAILY, ORAL
     Route: 048
     Dates: start: 20021108, end: 20030116
  3. THALOMID [Suspect]
     Indication: MULTIPLE MYELOMA
     Dosage: 200-300 MG, DAILY, ORAL
     Route: 048
     Dates: start: 20020801, end: 20030919
  4. THALOMID [Suspect]
     Indication: MULTIPLE MYELOMA
     Dosage: 200-300 MG, DAILY, ORAL
     Route: 048
     Dates: start: 20030117, end: 20040122
  5. THALOMID [Suspect]
     Indication: MULTIPLE MYELOMA
     Dosage: 200-300 MG, DAILY, ORAL
     Route: 048
     Dates: start: 20040123
  6. PAMIDRONATE DISODIUM [Concomitant]
  7. FENTANYL [Concomitant]
  8. ENALAPRIL MALEATE [Concomitant]
  9. OMEPRAZOLE [Concomitant]
  10. PREDNISONE [Concomitant]
  11. CHLORTHALIDONE [Concomitant]
  12. DILTIAZEM [Concomitant]
  13. DARBEPOETIN (DARBEPOETIN ALFA) [Concomitant]
  14. VITAMIN D [Concomitant]
  15. CALCIUM (CALCIUM) [Concomitant]
  16. AMLODIPINE [Concomitant]

REACTIONS (4)
  - NEPHROPATHY [None]
  - NEPHROTIC SYNDROME [None]
  - PERIPHERAL SENSORY NEUROPATHY [None]
  - RENAL FAILURE [None]
